FAERS Safety Report 6616082-2 (Version None)
Quarter: 2010Q1

REPORT INFORMATION
  Report Type: 
  Country: None (occurrence: None)
  Receive Date: 20100305
  Receipt Date: 20100226
  Transmission Date: 20100710
  Serious: Yes (Hospitalization)
  Sender: FDA-Public Use
  Company Number: US-ALLERGAN-1002573US

PATIENT
  Age: 58 Year
  Sex: Male

DRUGS (3)
  1. BOTOX [Suspect]
     Indication: DRUG USE FOR UNKNOWN INDICATION
     Dosage: 2.5 UNITS, SINGLE
     Route: 030
     Dates: start: 20100202, end: 20100202
  2. RANITIDINE [Concomitant]
     Dosage: UNK
     Dates: start: 20100202
  3. SUCCINYL [Concomitant]

REACTIONS (3)
  - PAIN [None]
  - PYREXIA [None]
  - RHABDOMYOLYSIS [None]
